FAERS Safety Report 11591605 (Version 1)
Quarter: 2015Q4

REPORT INFORMATION
  Report Type: Spontaneous
  Country: US (occurrence: US)
  Receive Date: 20151005
  Receipt Date: 20151005
  Transmission Date: 20160304
  Serious: No
  Sender: FDA-Public Use
  Company Number: US-NOVEN PHARMACEUTICALS, INC.-15US013626

PATIENT

DRUGS (2)
  1. COMBIPATCH [Suspect]
     Active Substance: ESTRADIOL\NORETHINDRONE ACETATE
     Indication: PRODUCT USED FOR UNKNOWN INDICATION
     Dosage: .05MG/.14 MG/DAY, TWICE WEEKLY
     Route: 062
  2. COMBIPATCH [Suspect]
     Active Substance: ESTRADIOL\NORETHINDRONE ACETATE
     Dosage: .05MG/.14 MG/DAY, TWICE WEEKLY
     Route: 062

REACTIONS (3)
  - Product quality issue [Not Recovered/Not Resolved]
  - Incorrect drug administration duration [Recovered/Resolved]
  - No adverse event [None]

NARRATIVE: CASE EVENT DATE: 20150216
